FAERS Safety Report 4934666-4 (Version None)
Quarter: 2006Q1

REPORT INFORMATION
  Report Type: 
  Country: None (occurrence: None)
  Receive Date: 20060303
  Receipt Date: 20060224
  Transmission Date: 20060701
  Serious: Yes (Hospitalization)
  Sender: FDA-Public Use
  Company Number: ZONI002278

PATIENT
  Age: 48 Year
  Sex: Female

DRUGS (4)
  1. ZONISAMIDE [Suspect]
     Indication: CONVULSION
     Dosage: 200 MG, 1 IN 1 D, ORAL
     Route: 048
     Dates: start: 20060119, end: 20060201
  2. THEO-DUR [Concomitant]
  3. FULUTIDE (FLUTICASONE PROPIONATE) [Concomitant]
  4. SEREVENT [Concomitant]

REACTIONS (4)
  - AGEUSIA [None]
  - EYE DISORDER [None]
  - RESPIRATORY DISTRESS [None]
  - STEVENS-JOHNSON SYNDROME [None]
